FAERS Safety Report 5016987-2 (Version None)
Quarter: 2006Q2

REPORT INFORMATION
  Report Type: 
  Country: None (occurrence: None)
  Receive Date: 20060526
  Receipt Date: 20060516
  Transmission Date: 20061013
  Serious: Yes (Life-Threatening, Hospitalization)
  Sender: FDA-Public Use
  Company Number: 24979

PATIENT
  Age: 67 Year
  Sex: Female
  Weight: 72 kg

DRUGS (2)
  1. NIASPAN [Suspect]
  2. ASPIRIN [Suspect]
     Indication: FLUSHING

REACTIONS (3)
  - ASTHENIA [None]
  - MELAENA [None]
  - SMALL INTESTINAL HAEMORRHAGE [None]
